FAERS Safety Report 10155407 (Version 1)
Quarter: 2014Q2

REPORT INFORMATION
  Report Type: Spontaneous
  Country: US (occurrence: US)
  Receive Date: 20140506
  Receipt Date: 20140506
  Transmission Date: 20141212
  Serious: Yes (Other)
  Sender: FDA-Public Use
  Company Number: US-TEVA-479597USA

PATIENT
  Age: 54 Year
  Sex: Female

DRUGS (1)
  1. COPAXONE [Suspect]
     Dates: start: 2003

REACTIONS (4)
  - Skin necrosis [Unknown]
  - Multiple sclerosis relapse [Unknown]
  - Skin infection [Unknown]
  - Influenza [Unknown]
